FAERS Safety Report 7680520-7 (Version None)
Quarter: 2011Q3

REPORT INFORMATION
  Report Type: 
  Country: None (occurrence: None)
  Receive Date: 20110812
  Receipt Date: 20110801
  Transmission Date: 20111222
  Serious: Yes (Hospitalization)
  Sender: FDA-Public Use
  Company Number: US-JNJFOC-20110307648

PATIENT
  Sex: Male

DRUGS (1)
  1. REMICADE [Suspect]
     Indication: CROHN'S DISEASE
     Dosage: TOTAL 8 DOSES
     Route: 042
     Dates: start: 20040506, end: 20050421

REACTIONS (3)
  - FISTULA [None]
  - ABSCESS [None]
  - HEPATITIS [None]
